FAERS Safety Report 16804892 (Version 7)
Quarter: 2019Q4

REPORT INFORMATION
  Report Type: Spontaneous
  Country: FR (occurrence: FR)
  Receive Date: 20190913
  Receipt Date: 20191226
  Transmission Date: 20200122
  Serious: Yes (Other)
  Sender: FDA-Public Use
  Company Number: FR-AUROBINDO-AUR-APL-2019-059926

PATIENT
  Age: 39 Year
  Sex: Female

DRUGS (8)
  1. BENDAMUSTINE HYDROCHLORIDE. [Suspect]
     Active Substance: BENDAMUSTINE HYDROCHLORIDE
     Indication: CHRONIC LYMPHOCYTIC LEUKAEMIA
     Dosage: UNK, CYCLICAL
     Route: 042
  2. ISAVUCONAZOLE [Concomitant]
     Active Substance: ISAVUCONAZOLE
     Indication: CEREBRAL ASPERGILLOSIS
     Dosage: 200 MILLIGRAM, ONCE A DAY, ALSO RECEIVED 300 MG
     Route: 065
  3. CASPOFUNGIN [Suspect]
     Active Substance: CASPOFUNGIN
     Indication: CEREBRAL ASPERGILLOSIS
  4. ISAVUCONAZOLE [Suspect]
     Active Substance: ISAVUCONAZOLE
     Indication: ASPERGILLUS INFECTION
     Dosage: 200 MILLIGRAM, ONCE A DAY (ALSO RECEIVED 300 MG)
     Route: 065
  5. ISAVUCONAZOLE [Suspect]
     Active Substance: ISAVUCONAZOLE
     Indication: CEREBRAL ASPERGILLOSIS
     Dosage: 300 MILLIGRAM, ONCE A DAY
     Route: 065
  6. VORICONAZOLE. [Suspect]
     Active Substance: VORICONAZOLE
     Indication: ASPERGILLUS INFECTION
     Dosage: UNK, (TWO WEEKS OF LIPOSOMAL AMPHOTERICIN B (L-AMB) IN 57 COMBINATION WITH VCZ FOLLOWED BY VCZ)
     Route: 065
  7. CASPOFUNGIN [Suspect]
     Active Substance: CASPOFUNGIN
     Indication: ASPERGILLUS INFECTION
     Dosage: 150 MILLIGRAM, ONCE A DAY
     Route: 065
  8. AMPHOTERICIN B. [Suspect]
     Active Substance: AMPHOTERICIN B
     Indication: ASPERGILLUS INFECTION
     Dosage: UNK
     Route: 065

REACTIONS (8)
  - Neutropenia [Recovered/Resolved]
  - Infection [Unknown]
  - Condition aggravated [Unknown]
  - Hepatitis [Unknown]
  - Treatment failure [Unknown]
  - Drug level decreased [Unknown]
  - Fungal test positive [Unknown]
  - Cerebral aspergillosis [Unknown]
